FAERS Safety Report 15152952 (Version 1)
Quarter: 2018Q3

REPORT INFORMATION
  Report Type: Spontaneous
  Country: US (occurrence: US)
  Receive Date: 20180619
  Receipt Date: 20180619
  Transmission Date: 20181010
  Serious: Yes (Other)
  Sender: FDA-Public Use
  Company Number: None

PATIENT
  Age: 71 Year
  Sex: Female
  Weight: 62.6 kg

DRUGS (1)
  1. IMATINIB [Suspect]
     Active Substance: IMATINIB
     Indication: CHRONIC MYELOID LEUKAEMIA
     Route: 048
     Dates: start: 20180404, end: 20180619

REACTIONS (6)
  - Diarrhoea [None]
  - Nausea [None]
  - Vomiting [None]
  - Product substitution issue [None]
  - Drug ineffective [None]
  - Counterfeit product administered [None]

NARRATIVE: CASE EVENT DATE: 20180619
